FAERS Safety Report 6921166-5 (Version None)
Quarter: 2010Q3

REPORT INFORMATION
  Report Type: 
  Country: None (occurrence: None)
  Receive Date: 20100812
  Receipt Date: 20100805
  Transmission Date: 20110219
  Serious: Yes (Other)
  Sender: FDA-Public Use
  Company Number: US-JNJCH-2009031609

PATIENT
  Age: 0 Year

DRUGS (2)
  1. ASPIRIN [Suspect]
     Indication: PRODUCT USED FOR UNKNOWN INDICATION
     Dosage: TEXT:225 MG EVERY FOUR HOURS
     Route: 048
  2. ANTIBIOTICS [Suspect]
     Indication: PRODUCT USED FOR UNKNOWN INDICATION
     Dosage: TEXT:UNSPECIFIED
     Route: 065

REACTIONS (2)
  - THERAPEUTIC AGENT TOXICITY [None]
  - WRONG DRUG ADMINISTERED [None]
